FAERS Safety Report 23217966 (Version 1)
Quarter: 2023Q4

REPORT INFORMATION
  Report Type: Spontaneous
  Country: US (occurrence: US)
  Receive Date: 20231122
  Receipt Date: 20231122
  Transmission Date: 20240109
  Serious: Yes (Hospitalization)
  Sender: FDA-Public Use
  Company Number: US-Fresenius Medical Care Renal Therapies Group-FMC-2311-001237

PATIENT
  Age: 63 Year
  Sex: Female
  Weight: 86 kg

DRUGS (3)
  1. DELFLEX WITH DEXTROSE 1.5% LOW MAGNESIUM LOW CALCIUM [Suspect]
     Active Substance: CALCIUM CHLORIDE\DEXTROSE\MAGNESIUM CHLORIDE\SODIUM CHLORIDE\SODIUM LACTATE
     Dosage: DELFLEX AT 2300 ML FOR 5 CYCLES WITH A LAST FILL OF ICO DEXTRIN AT 1000 ML AND NO DAYTIME EXCHANGE.
     Route: 033
     Dates: start: 20211119
  2. DELFLEX WITH DEXTROSE 2.5% LOW MAGNESIUM LOW CALCIUM [Suspect]
     Active Substance: CALCIUM CHLORIDE\DEXTROSE\MAGNESIUM CHLORIDE\SODIUM CHLORIDE\SODIUM LACTATE
     Dosage: DELFLEX AT 2300 ML FOR 5 CYCLES WITH A LAST FILL OF ICO DEXTRIN AT 1000 ML AND NO DAYTIME EXCHANGE.
     Route: 033
     Dates: start: 20211119
  3. ICODEXTRIN [Suspect]
     Active Substance: ICODEXTRIN

REACTIONS (1)
  - Peritonitis bacterial [Unknown]

NARRATIVE: CASE EVENT DATE: 20231108
